FAERS Safety Report 9551622 (Version 1)
Quarter: 2013Q3

REPORT INFORMATION
  Report Type: Spontaneous
  Country: US (occurrence: None)
  Receive Date: 20130724
  Receipt Date: 20130724
  Transmission Date: 20140515
  Serious: Yes (Other)
  Sender: FDA-Public Use
  Company Number: PHEH2013US004861

PATIENT
  Age: 46 Year
  Sex: Female

DRUGS (1)
  1. GLEEVEC (IMATINIB) UNKNOWN [Suspect]
     Indication: CHRONIC MYELOID LEUKAEMIA
     Route: 048
     Dates: start: 2003

REACTIONS (8)
  - Sepsis [None]
  - White blood cell count decreased [None]
  - Medication error [None]
  - Stress urinary incontinence [None]
  - Haemorrhage [None]
  - Drug ineffective [None]
  - Migraine [None]
  - Menorrhagia [None]
